FAERS Safety Report 9506030 (Version 1)
Quarter: 2013Q1

REPORT INFORMATION
  Report Type: Spontaneous
  Country: US (occurrence: None)
  Receive Date: 20130201
  Receipt Date: 20130201
  Transmission Date: 20140127
  Serious: No
  Sender: FDA-Public Use
  Company Number: US-010641

PATIENT
  Age: 53 Year
  Sex: Male
  Weight: 78.93 kg

DRUGS (5)
  1. PICO-SALAX (NOT SPECIFIED) [Suspect]
     Dosage: PACKETS AND WATER TAKEN AS INSTRUCTED
  2. CIPRO /00697302/ [Concomitant]
  3. MSM [Concomitant]
  4. CALCIUM CITRATE [Concomitant]
  5. D VITAMIN NATURE MADE [Concomitant]

REACTIONS (2)
  - Treatment noncompliance [None]
  - Drug ineffective [None]
